FAERS Safety Report 7199774-9 (Version None)
Quarter: 2010Q4

REPORT INFORMATION
  Report Type: 
  Country: None (occurrence: None)
  Receive Date: 20101228
  Receipt Date: 20100803
  Transmission Date: 20110411
  Serious: No
  Sender: FDA-Public Use
  Company Number: US-KINGPHARMUSA00001-K201000997

PATIENT
  Age: 72 Year
  Sex: Female
  Weight: 79.365 kg

DRUGS (2)
  1. CORGARD [Suspect]
     Indication: HEART RATE INCREASED
     Dosage: 40 MG, QD
     Route: 048
  2. PREMARIN [Concomitant]
     Dosage: 0.625 MG, UNK

REACTIONS (2)
  - MALAISE [None]
  - QUALITY OF LIFE DECREASED [None]
